FAERS Safety Report 12853718 (Version 3)
Quarter: 2017Q1

REPORT INFORMATION
  Report Type: Spontaneous
  Country: US (occurrence: US)
  Receive Date: 20161017
  Receipt Date: 20170131
  Transmission Date: 20170428
  Serious: Yes (Other)
  Sender: FDA-Public Use
  Company Number: US-BAYER-2016-198908

PATIENT
  Age: 57 Year
  Sex: Female

DRUGS (41)
  1. LEVAQUIN [Suspect]
     Active Substance: LEVOFLOXACIN
     Indication: SINOBRONCHITIS
     Dosage: 750 MG, QD
     Route: 048
     Dates: start: 20100528, end: 20100604
  2. LEVAQUIN [Suspect]
     Active Substance: LEVOFLOXACIN
     Indication: SINOBRONCHITIS
     Dosage: 750 MG, QD
     Route: 048
     Dates: start: 20140228, end: 20140310
  3. LEVOFLOXACIN. [Suspect]
     Active Substance: LEVOFLOXACIN
     Dosage: 750 MG, QD
     Route: 048
     Dates: start: 20140212, end: 20140221
  4. CIPRO [Suspect]
     Active Substance: CIPROFLOXACIN HYDROCHLORIDE
     Indication: CHRONIC OBSTRUCTIVE PULMONARY DISEASE
     Dosage: 500 MG, BID
     Route: 048
     Dates: start: 20080802, end: 20080812
  5. CIPRO [Suspect]
     Active Substance: CIPROFLOXACIN HYDROCHLORIDE
     Indication: CHRONIC OBSTRUCTIVE PULMONARY DISEASE
     Dosage: 500 MG, BID
     Route: 048
     Dates: start: 20061116, end: 20161123
  6. CIPRO [Suspect]
     Active Substance: CIPROFLOXACIN HYDROCHLORIDE
     Indication: CHRONIC OBSTRUCTIVE PULMONARY DISEASE
     Dosage: 500 MG, BID
     Route: 048
     Dates: start: 20160129, end: 20160203
  7. LEVAQUIN [Suspect]
     Active Substance: LEVOFLOXACIN
     Indication: PNEUMONIA
     Dosage: UNK
     Route: 042
     Dates: start: 20040315
  8. LEVAQUIN [Suspect]
     Active Substance: LEVOFLOXACIN
     Indication: SINOBRONCHITIS
     Dosage: 750 MG, QD
     Route: 048
     Dates: start: 20101222, end: 20101229
  9. CIPRO [Suspect]
     Active Substance: CIPROFLOXACIN HYDROCHLORIDE
     Dosage: 750 MG, BID
     Route: 048
     Dates: start: 20051201, end: 20051208
  10. CIPRO [Suspect]
     Active Substance: CIPROFLOXACIN HYDROCHLORIDE
     Dosage: 750 MG, BID
     Route: 048
     Dates: start: 20070714, end: 20070721
  11. LEVOFLOXACIN. [Suspect]
     Active Substance: LEVOFLOXACIN
     Dosage: 500 MG, QD
     Route: 048
     Dates: start: 20140320, end: 20140327
  12. LEVAQUIN [Suspect]
     Active Substance: LEVOFLOXACIN
     Indication: SINOBRONCHITIS
     Dosage: 500 MG, QD
     Route: 048
     Dates: start: 20020724, end: 20020803
  13. LEVAQUIN [Suspect]
     Active Substance: LEVOFLOXACIN
     Indication: SINOBRONCHITIS
     Dosage: 500 MG, QD
     Route: 048
     Dates: start: 20061127, end: 20061207
  14. LEVAQUIN [Suspect]
     Active Substance: LEVOFLOXACIN
     Indication: SINOBRONCHITIS
     Dosage: 500 MG, QD
     Route: 048
     Dates: start: 20070112, end: 20070122
  15. LEVAQUIN [Suspect]
     Active Substance: LEVOFLOXACIN
     Indication: SINOBRONCHITIS
     Dosage: 750 MG, QD
     Route: 048
     Dates: start: 20100825, end: 20100901
  16. LEVAQUIN [Suspect]
     Active Substance: LEVOFLOXACIN
     Indication: SINOBRONCHITIS
     Dosage: 250 MG, QD
     Route: 048
     Dates: start: 20100510, end: 20100517
  17. LEVAQUIN [Suspect]
     Active Substance: LEVOFLOXACIN
     Indication: SINOBRONCHITIS
     Dosage: 500 MG, QD
     Route: 048
     Dates: start: 20130206, end: 20130213
  18. CIPRO [Suspect]
     Active Substance: CIPROFLOXACIN HYDROCHLORIDE
     Dosage: 750 MG, BID
     Route: 048
     Dates: start: 20051215, end: 20051222
  19. CIPRO [Suspect]
     Active Substance: CIPROFLOXACIN HYDROCHLORIDE
     Indication: CHRONIC OBSTRUCTIVE PULMONARY DISEASE
     Dosage: 500 MG, BID
     Route: 048
     Dates: start: 20060731, end: 20060807
  20. CIPRO [Suspect]
     Active Substance: CIPROFLOXACIN HYDROCHLORIDE
     Indication: CHRONIC OBSTRUCTIVE PULMONARY DISEASE
     Dosage: 500 MG, BID
     Route: 048
     Dates: start: 20070702, end: 20070709
  21. CIPRO [Suspect]
     Active Substance: CIPROFLOXACIN HYDROCHLORIDE
     Indication: CHRONIC OBSTRUCTIVE PULMONARY DISEASE
     Dosage: 500 MG, BID
     Route: 048
     Dates: start: 20090220, end: 20090314
  22. CIPRO [Suspect]
     Active Substance: CIPROFLOXACIN HYDROCHLORIDE
     Indication: CHRONIC OBSTRUCTIVE PULMONARY DISEASE
     Dosage: 500 MG, BID
     Route: 048
     Dates: start: 20100227, end: 20100306
  23. LEVAQUIN [Suspect]
     Active Substance: LEVOFLOXACIN
     Indication: SINOBRONCHITIS
     Dosage: 500 MG, QD
     Route: 048
     Dates: start: 20091014, end: 20091021
  24. LEVAQUIN [Suspect]
     Active Substance: LEVOFLOXACIN
     Indication: SINOBRONCHITIS
     Dosage: 750 MG, QD
     Route: 048
     Dates: start: 20101111, end: 20101118
  25. CIPROFLOXACIN MONOHYDROCHLORIDE [Suspect]
     Active Substance: CIPROFLOXACIN
     Dosage: 500 MG, BID
     Route: 048
     Dates: start: 20110930, end: 20111010
  26. TEQUIN [Concomitant]
     Active Substance: GATIFLOXACIN
     Indication: PNEUMONIA
     Dosage: QD
     Route: 048
  27. LEVAQUIN [Suspect]
     Active Substance: LEVOFLOXACIN
     Indication: SINOBRONCHITIS
     Dosage: 500 MG, QD
     Route: 048
     Dates: start: 20070924, end: 20071004
  28. LEVAQUIN [Suspect]
     Active Substance: LEVOFLOXACIN
     Indication: SINOBRONCHITIS
     Dosage: 500 MG, QD
     Route: 048
     Dates: start: 20100707, end: 20100717
  29. LEVAQUIN [Suspect]
     Active Substance: LEVOFLOXACIN
     Indication: SINOBRONCHITIS
     Dosage: 750 MG, QD
     Route: 048
     Dates: start: 20100128, end: 20100202
  30. LEVAQUIN [Suspect]
     Active Substance: LEVOFLOXACIN
     Indication: SINOBRONCHITIS
     Dosage: 750 MG, QD
     Route: 048
     Dates: start: 20140212, end: 20140221
  31. CIPRO [Suspect]
     Active Substance: CIPROFLOXACIN HYDROCHLORIDE
     Dosage: 750 MG, BID
     Route: 048
     Dates: start: 20070205, end: 20070212
  32. CIPROFLOXACIN MONOHYDROCHLORIDE [Suspect]
     Active Substance: CIPROFLOXACIN
     Dosage: 500 MG, BID
     Route: 048
     Dates: start: 20110923, end: 20110928
  33. LEVOFLOXACIN. [Suspect]
     Active Substance: LEVOFLOXACIN
     Dosage: 500 MG, QD
     Route: 048
     Dates: start: 20130206, end: 20130213
  34. CIPRO [Suspect]
     Active Substance: CIPROFLOXACIN HYDROCHLORIDE
     Indication: CHRONIC OBSTRUCTIVE PULMONARY DISEASE
     Dosage: 500 MG, BID
     Route: 048
     Dates: start: 20070724, end: 20070731
  35. CIPRO [Suspect]
     Active Substance: CIPROFLOXACIN HYDROCHLORIDE
     Dosage: 750 MG, BID
     Route: 048
     Dates: start: 20070306
  36. LEVOFLOXACIN. [Suspect]
     Active Substance: LEVOFLOXACIN
     Dosage: 750 MG, QD
     Route: 048
     Dates: start: 20140228, end: 20140310
  37. CIPRO [Suspect]
     Active Substance: CIPROFLOXACIN HYDROCHLORIDE
     Indication: CHRONIC OBSTRUCTIVE PULMONARY DISEASE
     Dosage: 500 MG, BID
     Route: 048
     Dates: start: 20160126, end: 20160129
  38. LEVAQUIN [Suspect]
     Active Substance: LEVOFLOXACIN
     Indication: SINOBRONCHITIS
     Dosage: 250 MG, QD
     Route: 048
     Dates: start: 20100430, end: 20100507
  39. LEVAQUIN [Suspect]
     Active Substance: LEVOFLOXACIN
     Indication: SINOBRONCHITIS
     Dosage: 500 MG, QD
     Route: 048
     Dates: start: 20140320, end: 20140327
  40. CIPRO [Suspect]
     Active Substance: CIPROFLOXACIN HYDROCHLORIDE
     Indication: CHRONIC OBSTRUCTIVE PULMONARY DISEASE
     Dosage: 500 MG, BID
     Route: 048
     Dates: start: 20090203, end: 20090213
  41. CIPROFLOXACIN. [Suspect]
     Active Substance: CIPROFLOXACIN
     Dosage: UNK
     Dates: start: 20100825

REACTIONS (6)
  - Musculoskeletal injury [None]
  - Mental disorder [None]
  - Cardiovascular disorder [None]
  - Neuropathy peripheral [Not Recovered/Not Resolved]
  - Nervous system disorder [None]
  - Skin injury [None]

NARRATIVE: CASE EVENT DATE: 200211
